FAERS Safety Report 23145660 (Version 1)
Quarter: 2023Q4

REPORT INFORMATION
  Report Type: Spontaneous
  Country: US (occurrence: US)
  Receive Date: 20231103
  Receipt Date: 20231103
  Transmission Date: 20240109
  Serious: Yes (Other)
  Sender: FDA-Public Use
  Company Number: US-GILEAD-2023-0649628

PATIENT
  Age: 72 Year
  Sex: Male

DRUGS (1)
  1. TRODELVY [Suspect]
     Active Substance: SACITUZUMAB GOVITECAN-HZIY
     Indication: Transitional cell carcinoma metastatic
     Dosage: 10 MG/KG, DAYS 1 AND 28 FOR 21-DAY CONTINUOUS TREATMENT CYCLE
     Route: 065

REACTIONS (1)
  - Neutropenia [Recovering/Resolving]
